FAERS Safety Report 8211145-2 (Version None)
Quarter: 2012Q1

REPORT INFORMATION
  Report Type: 
  Country: None (occurrence: None)
  Receive Date: 20120315
  Receipt Date: 20120307
  Transmission Date: 20120608
  Serious: Yes (Other)
  Sender: FDA-Public Use
  Company Number: GB-UCBSA-051013

PATIENT
  Sex: Male

DRUGS (3)
  1. VIMPAT [Suspect]
     Indication: CONVULSION
     Dosage: 200 TWICE IN A DAY: TOTAL DAILY DOSE: 400
     Route: 048
     Dates: start: 20110601
  2. CLONAZEPAM [Concomitant]
     Dosage: DOSE PER INTAKE: 0.5/ 1 MG; FREQUENCY: ONCE IN A DAY; TOTAL DAILY DOSE: 0.5/ 1 MG
     Route: 048
  3. VALPROATE SODIUM [Concomitant]
     Dosage: DOSE PER INTAKE: 500/ 1 GM; FREQUENCY: TWICE IN A DAY; TOTAL DAILY DOSE: 1.5 GM
     Route: 048

REACTIONS (1)
  - OBSESSIVE-COMPULSIVE DISORDER [None]
